FAERS Safety Report 16909369 (Version 1)
Quarter: 2019Q4

REPORT INFORMATION
  Report Type: Spontaneous
  Country: DE (occurrence: DE)
  Receive Date: 20191011
  Receipt Date: 20191011
  Transmission Date: 20200122
  Serious: Yes (Other)
  Sender: FDA-Public Use
  Company Number: DE-ASTRAZENECA-2019SF41563

PATIENT
  Sex: Female
  Weight: 80 kg

DRUGS (4)
  1. SYMBICORT [Suspect]
     Active Substance: BUDESONIDE\FORMOTEROL FUMARATE DIHYDRATE
     Indication: ASTHMA
     Dosage: 320 [???G/D ] / 9 [???G/D ] 2 SEPARATED DOSES
     Route: 055
     Dates: start: 20180924, end: 20190613
  2. VITAMIN D NOS [Concomitant]
     Active Substance: VITAMIN D NOS
     Indication: PROPHYLAXIS
     Route: 048
  3. ASS 100 [Concomitant]
     Active Substance: ASPIRIN
     Indication: PROPHYLAXIS
     Route: 048
     Dates: start: 20190221, end: 20190409
  4. CERTOLIZUMAB PEGOL [Suspect]
     Active Substance: CERTOLIZUMAB PEGOL
     Indication: AXIAL SPONDYLOARTHRITIS
     Dosage: 200 [MG ]/ INITIAL 200MG EVERY SECOND WEEK, FROM WEEK 14+1 200MG EVERY THIRD WEEK
     Route: 058
     Dates: start: 20180924, end: 20190613

REACTIONS (2)
  - Placental insufficiency [Not Recovered/Not Resolved]
  - Exposure during pregnancy [Unknown]
